FAERS Safety Report 19884855 (Version 1)
Quarter: 2021Q3

REPORT INFORMATION
  Report Type: Spontaneous
  Country: US (occurrence: US)
  Receive Date: 20210923
  Receipt Date: 20210923
  Transmission Date: 20211014
  Serious: No
  Sender: FDA-Public Use
  Company Number: None

PATIENT
  Age: 80 Year
  Sex: Male
  Weight: 86.64 kg

DRUGS (1)
  1. IBRUTINIB (IBRUTINIB 140MG CAP,ORAL) [Suspect]
     Active Substance: IBRUTINIB
     Indication: WALDENSTROM^S MACROGLOBULINAEMIA
     Route: 048
     Dates: start: 20200824, end: 20210312

REACTIONS (8)
  - Cold sweat [None]
  - Atrial fibrillation [None]
  - Electrocardiogram ST segment depression [None]
  - Atelectasis [None]
  - Chills [None]
  - Pleural effusion [None]
  - Pneumonia [None]
  - Palpitations [None]

NARRATIVE: CASE EVENT DATE: 20210223
